FAERS Safety Report 6868734-7 (Version None)
Quarter: 2010Q3

REPORT INFORMATION
  Report Type: 
  Country: None (occurrence: None)
  Receive Date: 20100722
  Receipt Date: 20080609
  Transmission Date: 20110219
  Serious: No
  Sender: FDA-Public Use
  Company Number: US-PFIZER INC-2008050605

PATIENT
  Sex: Female
  Weight: 68.2 kg

DRUGS (2)
  1. CHANTIX [Suspect]
     Dates: start: 20080501
  2. PREDNISONE [Concomitant]
     Dates: start: 20080501

REACTIONS (5)
  - ABNORMAL DREAMS [None]
  - DIZZINESS [None]
  - INCORRECT DOSE ADMINISTERED [None]
  - NAUSEA [None]
  - RESPIRATORY DISORDER [None]
